FAERS Safety Report 8479600-8 (Version None)
Quarter: 2012Q2

REPORT INFORMATION
  Report Type: 
  Country: None (occurrence: None)
  Receive Date: 20120629
  Receipt Date: 20120628
  Transmission Date: 20120825
  Serious: No
  Sender: FDA-Public Use
  Company Number: US-PFIZER INC-2012156256

PATIENT
  Sex: Male
  Weight: 113.38 kg

DRUGS (7)
  1. CHANTIX [Suspect]
     Indication: SMOKING CESSATION THERAPY
     Dosage: 0.5 MG, 1X/DAY
     Route: 048
  2. FUROSEMIDE [Concomitant]
     Dosage: UNK
  3. CITALOPRAM [Concomitant]
     Indication: MOOD ALTERED
  4. CHANTIX [Suspect]
     Dosage: UNK
     Route: 048
     Dates: end: 20111001
  5. CHANTIX [Suspect]
     Dosage: UNK
     Route: 048
     Dates: start: 20110606
  6. LISINOPRIL [Concomitant]
     Indication: HYPERTENSION
     Dosage: UNK
  7. CITALOPRAM [Concomitant]
     Indication: DEPRESSION
     Dosage: UNK

REACTIONS (4)
  - JOINT INJURY [None]
  - DEPRESSED MOOD [None]
  - FEELING ABNORMAL [None]
  - ABNORMAL DREAMS [None]
